FAERS Safety Report 7872641-0 (Version None)
Quarter: 2011Q4

REPORT INFORMATION
  Report Type: 
  Country: None (occurrence: None)
  Receive Date: 20111030
  Receipt Date: 20110429
  Transmission Date: 20120403
  Serious: Yes (Hospitalization)
  Sender: FDA-Public Use
  Company Number: US-AMGEN-USASP2011022461

PATIENT
  Age: 60 Year
  Sex: Male

DRUGS (1)
  1. ENBREL [Suspect]
     Indication: RHEUMATOID ARTHRITIS
     Dosage: 50 MG, QWK
     Dates: start: 20070101

REACTIONS (8)
  - CHILLS [None]
  - PYREXIA [None]
  - SINUS DISORDER [None]
  - SNEEZING [None]
  - ABSCESS LIMB [None]
  - HEADACHE [None]
  - RHINORRHOEA [None]
  - PAIN IN EXTREMITY [None]
